FAERS Safety Report 5139717-2 (Version None)
Quarter: 2006Q4

REPORT INFORMATION
  Report Type: 
  Country: None (occurrence: None)
  Receive Date: 20061030
  Receipt Date: 20061020
  Transmission Date: 20070319
  Serious: Yes (Hospitalization)
  Sender: FDA-Public Use
  Company Number: US-ABBOTT-06P-163-0347956-00

PATIENT
  Sex: Female
  Weight: 45.4 kg

DRUGS (1)
  1. SYNTHROID [Suspect]
     Indication: THYROID DISORDER
     Route: 048
     Dates: start: 20060101

REACTIONS (5)
  - ALOPECIA [None]
  - FATIGUE [None]
  - HEADACHE [None]
  - MIGRAINE [None]
  - THYROID CANCER [None]
